FAERS Safety Report 9232310 (Version 1)
Quarter: 2013Q2

REPORT INFORMATION
  Report Type: Spontaneous
  Country: US (occurrence: US)
  Receive Date: 20130416
  Receipt Date: 20130416
  Transmission Date: 20140414
  Serious: Yes (Hospitalization)
  Sender: FDA-Public Use
  Company Number: US-RANBAXY-2013US-67470

PATIENT
  Age: 46 Year
  Sex: Male

DRUGS (2)
  1. SERTRALINE [Suspect]
     Indication: DEPRESSION
     Dosage: 100 MG/DAY
     Route: 065
  2. NYQUIL [Interacting]
     Indication: NASOPHARYNGITIS
     Dosage: 240 ML IN ONE NIGHT
     Route: 048

REACTIONS (2)
  - Serotonin syndrome [Recovered/Resolved]
  - Drug interaction [Recovered/Resolved]
